FAERS Safety Report 18944542 (Version 1)
Quarter: 2021Q1

REPORT INFORMATION
  Report Type: Spontaneous
  Country: JP (occurrence: JP)
  Receive Date: 20210226
  Receipt Date: 20210226
  Transmission Date: 20210420
  Serious: Yes (Life-Threatening)
  Sender: FDA-Public Use
  Company Number: JP-ROCHE-2777653

PATIENT
  Age: 84 Year
  Sex: Male
  Weight: 53 kg

DRUGS (13)
  1. SENNOSIDE [Concomitant]
     Active Substance: SENNOSIDES
     Dosage: DOSAGE IS UNCERTAIN.
     Route: 048
     Dates: start: 20190524
  2. ITOROL [Concomitant]
     Active Substance: ISOSORBIDE MONONITRATE
     Dosage: DOSAGE IS UNCERTAIN.
     Route: 048
  3. CALONAL [Concomitant]
     Active Substance: ACETAMINOPHEN
     Dosage: DOSAGE IS UNCERTAIN.
     Route: 048
     Dates: start: 20190420
  4. XELODA [Suspect]
     Active Substance: CAPECITABINE
     Dosage: TWO WEEKS AFTER ONE WEEK SUSPENSION
     Route: 048
     Dates: start: 20200521
  5. TAKECAB [Concomitant]
     Active Substance: VONOPRAZAN FUMARATE
     Dosage: DOSAGE IS UNCERTAIN.
     Route: 048
     Dates: start: 20200416
  6. FERROUS CITRATE [Concomitant]
     Active Substance: FERROUS CITRATE
     Dosage: DOSAGE IS UNCERTAIN.
     Route: 048
     Dates: start: 20201105
  7. XELODA [Suspect]
     Active Substance: CAPECITABINE
     Indication: RECTAL CANCER
     Dosage: TWO WEEKS AFTER ONE WEEK SUSPENSION
     Route: 048
     Dates: start: 20200228
  8. FUROSEMIDE. [Concomitant]
     Active Substance: FUROSEMIDE
     Dosage: DOSAGE IS UNCERTAIN.
     Route: 048
     Dates: start: 20201105
  9. AVASTIN [Suspect]
     Active Substance: BEVACIZUMAB
     Indication: RECTAL CANCER
     Dosage: ONE DOSEGE TWO SUSPENSION
     Route: 041
     Dates: start: 20200228, end: 20201119
  10. AMLODIPINE [Concomitant]
     Active Substance: AMLODIPINE BESYLATE
     Dosage: DOSAGE IS UNCERTAIN.
     Route: 048
  11. REBAMIPIDE [Concomitant]
     Active Substance: REBAMIPIDE
     Dosage: DOSAGE IS UNCERTAIN.
     Route: 048
     Dates: start: 20190420
  12. BEZATOL SR [Concomitant]
     Active Substance: BEZAFIBRATE
     Dosage: DOSAGE IS UNCERTAIN.
     Route: 048
  13. MAGNESIUM OXIDE. [Concomitant]
     Active Substance: MAGNESIUM OXIDE
     Dosage: DOSAGE IS UNCERTAIN.
     Route: 048
     Dates: start: 20190416

REACTIONS (1)
  - Cerebral infarction [Recovering/Resolving]

NARRATIVE: CASE EVENT DATE: 20201207
